FAERS Safety Report 5637793-1 (Version None)
Quarter: 2008Q1

REPORT INFORMATION
  Report Type: 
  Country: None (occurrence: None)
  Receive Date: 20080220
  Receipt Date: 20080212
  Transmission Date: 20080703
  Serious: Yes (Death, Hospitalization, Other)
  Sender: FDA-Public Use
  Company Number: ADR0302008

PATIENT
  Age: 66 Year
  Sex: Male

DRUGS (8)
  1. SIMVASTATIN [Suspect]
     Indication: HYPERLIPIDAEMIA
     Dosage: 60 MG/DAY, ORAL
     Route: 048
  2. COLCHICINE [Concomitant]
  3. MYCOPHENOLATE MOFETIL [Concomitant]
  4. PREDNISONE TAB [Concomitant]
  5. CYCLOSPORINE [Concomitant]
  6. INSULIN [Concomitant]
  7. PROPOFOL INFUSION [Concomitant]
  8. METHYLPREDNISOLONE [Concomitant]

REACTIONS (3)
  - GENERAL PHYSICAL HEALTH DETERIORATION [None]
  - RHABDOMYOLYSIS [None]
  - WEIGHT DECREASED [None]
